FAERS Safety Report 23335561 (Version 1)
Quarter: 2023Q4

REPORT INFORMATION
  Report Type: Spontaneous
  Country: US (occurrence: US)
  Receive Date: 20231225
  Receipt Date: 20231225
  Transmission Date: 20240109
  Serious: Yes (Other)
  Sender: FDA-Public Use
  Company Number: US-AMGEN-USASP2023226410

PATIENT

DRUGS (5)
  1. CARFILZOMIB [Suspect]
     Active Substance: CARFILZOMIB
     Indication: Plasma cell myeloma
     Dosage: 20 MILLIGRAM/SQ. METER ON C1D1
     Route: 042
  2. CARFILZOMIB [Suspect]
     Active Substance: CARFILZOMIB
     Dosage: 56 MILLIGRAM/SQ. METER ON C1 D8, D15
     Route: 042
  3. CARFILZOMIB [Suspect]
     Active Substance: CARFILZOMIB
     Dosage: 56 MILLIGRAM/SQ. METER C2-4, D1, 8, 15
     Route: 042
  4. IBERDOMIDE [Suspect]
     Active Substance: IBERDOMIDE
     Indication: Plasma cell myeloma
     Dosage: 1.3 MILLIGRAM ON D1-21
     Route: 048
  5. DEXAMETHASONE [Suspect]
     Active Substance: DEXAMETHASONE
     Indication: Plasma cell myeloma
     Dosage: UNK  (D1, 8, 15)
     Route: 065

REACTIONS (1)
  - Neutropenia [Unknown]
